FAERS Safety Report 23498690 (Version 1)
Quarter: 2024Q1

REPORT INFORMATION
  Report Type: Spontaneous
  Country: US (occurrence: US)
  Receive Date: 20240207
  Receipt Date: 20240207
  Transmission Date: 20240410
  Serious: Yes (Hospitalization, Other)
  Sender: FDA-Public Use
  Company Number: US-JNJFOC-20240202315

PATIENT
  Sex: Female

DRUGS (1)
  1. XARELTO [Suspect]
     Active Substance: RIVAROXABAN
     Indication: Product used for unknown indication
     Route: 048

REACTIONS (6)
  - Abortion spontaneous [Not Recovered/Not Resolved]
  - Thrombosis [Unknown]
  - Hospitalisation [Unknown]
  - Exposure during pregnancy [Recovered/Resolved]
  - Near death experience [Unknown]
  - Treatment noncompliance [Unknown]
